FAERS Safety Report 5287355-3 (Version None)
Quarter: 2007Q1

REPORT INFORMATION
  Report Type: 
  Country: None (occurrence: None)
  Receive Date: 20070116
  Receipt Date: 20061127
  Transmission Date: 20070707
  Serious: No
  Sender: FDA-Public Use
  Company Number: 2006SP004157

PATIENT
  Age: 50 Year
  Sex: Female
  Weight: 97.5234 kg

DRUGS (12)
  1. LUNESTA [Suspect]
     Indication: SLEEP DISORDER
     Dosage: 3 MG;ORAL
     Route: 048
     Dates: start: 20061101, end: 20061126
  2. GLUCOPHAGE [Concomitant]
  3. PIOGLITAZONE HCL [Concomitant]
  4. FENTANYL [Concomitant]
  5. PREVACID [Concomitant]
  6. LEVSINEX [Concomitant]
  7. CYMBALTA [Concomitant]
  8. ACETYLSALICYLIC ACID SRT [Concomitant]
  9. ESTROGENS [Concomitant]
  10. TIAZAC [Concomitant]
  11. TETRACYCLINE [Concomitant]
  12. VITAMIN D [Concomitant]

REACTIONS (1)
  - DYSGEUSIA [None]
